FAERS Safety Report 23861658 (Version 1)
Quarter: 2024Q2

REPORT INFORMATION
  Report Type: Spontaneous
  Country: ZA (occurrence: ZA)
  Receive Date: 20240516
  Receipt Date: 20240516
  Transmission Date: 20240716
  Serious: Yes (Disabling)
  Sender: FDA-Public Use
  Company Number: ZA-CIPLA LTD.-2024ZA04532

PATIENT

DRUGS (9)
  1. EZETIMIBE\ROSUVASTATIN [Suspect]
     Active Substance: EZETIMIBE\ROSUVASTATIN
     Indication: Coronary angioplasty
     Dosage: 40/10 MG, UNK
     Route: 048
     Dates: start: 20240429, end: 20240430
  2. EZETIMIBE\ROSUVASTATIN [Suspect]
     Active Substance: EZETIMIBE\ROSUVASTATIN
     Dosage: UNK
     Route: 048
     Dates: start: 2024, end: 20240501
  3. PIROXICAM [Suspect]
     Active Substance: PIROXICAM
     Indication: Joint stiffness
     Dosage: UNK
     Route: 065
     Dates: start: 2024
  4. PIROXICAM [Suspect]
     Active Substance: PIROXICAM
     Indication: Arthralgia
  5. DICLOFENAC [Suspect]
     Active Substance: DICLOFENAC
     Indication: Joint stiffness
     Dosage: UNK
     Route: 065
     Dates: start: 2024
  6. DICLOFENAC [Suspect]
     Active Substance: DICLOFENAC
     Indication: Arthralgia
  7. MAGNESIUM CHLORIDE [Suspect]
     Active Substance: MAGNESIUM CHLORIDE
     Indication: Joint stiffness
     Dosage: 2 CAPSULES
     Route: 065
     Dates: start: 2024
  8. MAGNESIUM CHLORIDE [Suspect]
     Active Substance: MAGNESIUM CHLORIDE
     Indication: Arthralgia
  9. BISOPROLOL FUMARATE [Concomitant]
     Active Substance: BISOPROLOL FUMARATE
     Indication: Coronary angioplasty
     Dosage: 5 MILLIGRAM, DAILY
     Route: 048
     Dates: start: 2022

REACTIONS (3)
  - Joint stiffness [Not Recovered/Not Resolved]
  - Drug ineffective [Unknown]
  - Arthralgia [Not Recovered/Not Resolved]

NARRATIVE: CASE EVENT DATE: 20240101
